FAERS Safety Report 7275299-7 (Version None)
Quarter: 2011Q1

REPORT INFORMATION
  Report Type: 
  Country: None (occurrence: None)
  Receive Date: 20110204
  Receipt Date: 20110126
  Transmission Date: 20110831
  Serious: Yes (Other)
  Sender: FDA-Public Use
  Company Number: PHHY2011ZA06201

PATIENT
  Sex: Female

DRUGS (1)
  1. ACLASTA [Suspect]
     Dosage: 5 MG, UNK
     Dates: start: 20101101

REACTIONS (3)
  - UPPER LIMB FRACTURE [None]
  - ANKLE FRACTURE [None]
  - FALL [None]
